FAERS Safety Report 5030637-0 (Version None)
Quarter: 2006Q2

REPORT INFORMATION
  Report Type: 
  Country: None (occurrence: None)
  Receive Date: 20060620
  Receipt Date: 20060608
  Transmission Date: 20061013
  Serious: Yes (Death)
  Sender: FDA-Public Use
  Company Number: DE-MERCK-0606DEU00032

PATIENT
  Age: 70 Year
  Sex: Male

DRUGS (3)
  1. CANCIDAS [Suspect]
     Indication: CANDIDA SEPSIS
     Route: 065
  2. CANCIDAS [Suspect]
     Indication: ENDOCARDITIS
     Route: 065
  3. ANTIMICROBIAL (UNSPECIFIED) [Concomitant]
     Indication: ENDOCARDITIS
     Route: 065

REACTIONS (3)
  - CANDIDA SEPSIS [None]
  - DRUG INEFFECTIVE [None]
  - ENDOCARDITIS [None]
